FAERS Safety Report 7428987-3 (Version None)
Quarter: 2011Q2

REPORT INFORMATION
  Report Type: 
  Country: None (occurrence: None)
  Receive Date: 20110418
  Receipt Date: 20110418
  Transmission Date: 20111010
  Serious: No
  Sender: FDA-Public Use
  Company Number: None

PATIENT
  Sex: Female
  Weight: 55.91 kg

DRUGS (2)
  1. PACLITAXEL [Suspect]
     Dosage: 259 MG
  2. CARBOPLATIN [Suspect]
     Dosage: 447 MG

REACTIONS (1)
  - NEUTROPHIL COUNT DECREASED [None]
